FAERS Safety Report 21203754 (Version 4)
Quarter: 2022Q3

REPORT INFORMATION
  Report Type: Spontaneous
  Country: FR (occurrence: None)
  Receive Date: 20220811
  Receipt Date: 20220923
  Transmission Date: 20221027
  Serious: Yes (Other)
  Sender: FDA-Public Use
  Company Number: 2022A276172

PATIENT
  Age: 74 Year
  Sex: Male
  Weight: 81 kg

DRUGS (25)
  1. TICAGRELOR [Suspect]
     Active Substance: TICAGRELOR
     Indication: Anticoagulant therapy
     Dosage: 180 MG DAILY
     Route: 048
     Dates: start: 20220225, end: 20220227
  2. AMIODARONE [Suspect]
     Active Substance: AMIODARONE
     Indication: Product used for unknown indication
     Dosage: 800 MG DAILY
     Route: 048
     Dates: start: 20220227
  3. ATORVASTATIN CALCIUM [Suspect]
     Active Substance: ATORVASTATIN CALCIUM
     Indication: Dyslipidaemia
     Dosage: 80 MG DAILY
     Route: 048
     Dates: end: 20220227
  4. INDAPAMIDE [Suspect]
     Active Substance: INDAPAMIDE
     Indication: Cardiovascular disorder
     Dosage: 1.5 MG DAILY
     Route: 048
     Dates: end: 20220227
  5. INDAPAMIDE [Suspect]
     Active Substance: INDAPAMIDE
     Indication: Myocardial infarction
     Dosage: 1.5 MG DAILY
     Route: 048
     Dates: end: 20220227
  6. GLICLAZIDE [Suspect]
     Active Substance: GLICLAZIDE
     Indication: Insulin-requiring type 2 diabetes mellitus
     Dosage: MODIFIED-RELEASE SCORED TABLET 60 MG 60 MG DAILY
     Route: 048
     Dates: end: 20220228
  7. HEPARIN SODIUM [Suspect]
     Active Substance: HEPARIN SODIUM
     Indication: Thrombosis prophylaxis
     Dosage: 5000 IU/ML 24000 IU DAILY
     Route: 042
     Dates: start: 20220225, end: 20220227
  8. IOMERON [Suspect]
     Active Substance: IOMEPROL
     Indication: Scan with contrast
     Dosage: 182 ML ONCE/SINGLE ADMINISTRATION
     Route: 042
     Dates: start: 20220225, end: 20220225
  9. METFORMIN HYDROCHLORIDE [Suspect]
     Active Substance: METFORMIN HYDROCHLORIDE
     Indication: Insulin-requiring type 2 diabetes mellitus
     Dosage: 1000 MG 2000 MG DAILY
     Route: 048
     Dates: end: 20220228
  10. PERINDOPRIL [Suspect]
     Active Substance: PERINDOPRIL
     Indication: Cardiovascular disorder
     Dosage: 8 MG DAILY
     Route: 048
     Dates: end: 20220227
  11. PERINDOPRIL [Suspect]
     Active Substance: PERINDOPRIL
     Indication: Myocardial infarction
     Dosage: 8 MG DAILY
     Route: 048
     Dates: end: 20220227
  12. PLAVIX [Suspect]
     Active Substance: CLOPIDOGREL BISULFATE
     Indication: Product used for unknown indication
     Dosage: 300 MG DAILY
     Route: 048
     Dates: start: 20220227, end: 20220228
  13. PLAVIX [Suspect]
     Active Substance: CLOPIDOGREL BISULFATE
     Indication: Product used for unknown indication
     Route: 048
  14. XARELTO [Suspect]
     Active Substance: RIVAROXABAN
     Indication: Product used for unknown indication
     Dosage: 20 MG DAILY
     Route: 048
     Dates: start: 20220227
  15. INSULIN GLARGINE [Concomitant]
     Active Substance: INSULIN GLARGINE
     Dosage: 14 DF DAILY
     Route: 058
  16. BECLOMETASONE TEVA [Concomitant]
     Dosage: 250 MICROGRAMS PER INHALATION, INHALED, 1-0-1,
     Route: 055
  17. INDAPAMIDE\PERINDOPRIL [Concomitant]
     Active Substance: INDAPAMIDE\PERINDOPRIL
     Dosage: 10 MG/2.5 MG, 1-0-0
     Route: 048
  18. DOLIPRANE [Concomitant]
     Active Substance: ACETAMINOPHEN
     Dosage: 1000 MILLIGRAMS
     Route: 048
  19. METFORMIN HYDROCHLORIDE\VILDAGLIPTIN [Concomitant]
     Active Substance: METFORMIN HYDROCHLORIDE\VILDAGLIPTIN
     Dosage: 50 MG/1000 MG,1-0-1
     Route: 048
  20. FOLIC ACID [Concomitant]
     Active Substance: FOLIC ACID
     Dosage: 1-0-0
     Route: 048
  21. VILDAGLIPTIN [Concomitant]
     Active Substance: VILDAGLIPTIN
     Dosage: 50 MG
     Route: 065
  22. HUMALOG [Concomitant]
     Active Substance: INSULIN LISPRO
     Dosage: DEPENDING ON BLOOD GLUCOSE
     Route: 058
  23. KARDEGIC [Concomitant]
     Active Substance: ASPIRIN DL-LYSINE
     Dosage: 75 MG, POWDER FOR ORAL SOLUTION IN SACHET-DOSE (1-0-0)
     Route: 048
  24. LANSOPRAZOLE VIATRIS [Concomitant]
     Dosage: DEPENDING ON BLOOD GLUCOSE 15 MG
     Route: 058
  25. VENTOLIN [Concomitant]
     Active Substance: ALBUTEROL SULFATE
     Dosage: 100 MICROGRAMS PER INHALATION, INTERMITTENT, INHALED, IF NECESSARY
     Route: 055

REACTIONS (1)
  - Acute kidney injury [Recovered/Resolved]

NARRATIVE: CASE EVENT DATE: 20220227
